FAERS Safety Report 6269127-6 (Version None)
Quarter: 2009Q3

REPORT INFORMATION
  Report Type: 
  Country: None (occurrence: None)
  Receive Date: 20090715
  Receipt Date: 20090708
  Transmission Date: 20100115
  Serious: Yes (Hospitalization, Other)
  Sender: FDA-Public Use
  Company Number: US-AMGEN-QUU351427

PATIENT
  Sex: Male

DRUGS (12)
  1. ENBREL [Suspect]
     Indication: PSORIASIS
     Route: 058
     Dates: start: 20080401, end: 20090615
  2. ASTELIN [Concomitant]
     Route: 045
  3. LABETALOL HCL [Concomitant]
     Route: 048
  4. SKIN OINTMENT NOS [Concomitant]
     Route: 061
  5. VISTARIL [Concomitant]
     Route: 048
  6. FLUTICASONE [Concomitant]
     Route: 045
  7. ACIPHEX [Concomitant]
     Route: 048
  8. ALLEGRA [Concomitant]
     Route: 048
  9. XANAX [Concomitant]
  10. CRESTOR [Concomitant]
  11. LIPITOR [Concomitant]
  12. PHENERGAN [Concomitant]

REACTIONS (16)
  - ABSCESS [None]
  - ALCOHOLISM [None]
  - AMNESIA [None]
  - ANXIETY [None]
  - CELLULITIS [None]
  - DELIRIUM TREMENS [None]
  - ENDOTRACHEAL INTUBATION [None]
  - FEELING ABNORMAL [None]
  - LIVER FUNCTION TEST ABNORMAL [None]
  - MYALGIA [None]
  - OXYGEN SATURATION DECREASED [None]
  - PANCYTOPENIA [None]
  - PLATELET COUNT DECREASED [None]
  - RHABDOMYOLYSIS [None]
  - UPPER RESPIRATORY TRACT INFECTION [None]
  - WEIGHT DECREASED [None]
